FAERS Safety Report 14775997 (Version 2)
Quarter: 2018Q2

REPORT INFORMATION
  Report Type: Report from Study
  Country: US (occurrence: US)
  Receive Date: 20180418
  Receipt Date: 20180604
  Transmission Date: 20180711
  Serious: Yes (Death, Hospitalization, Other)
  Sender: FDA-Public Use
  Company Number: US-B.I. PHARMACEUTICALS,INC./RIDGEFIELD-2018-BI-020992

PATIENT
  Age: 77 Year
  Sex: Male

DRUGS (1)
  1. GILOTRIF [Suspect]
     Active Substance: AFATINIB
     Indication: NON-SMALL CELL LUNG CANCER METASTATIC
     Dosage: ADMINISTRATION CORRECT? YES ?ACTION(S) TAKEN WITH PRODUCT: DOSE NOT CHANGED
     Route: 048
     Dates: start: 20180328

REACTIONS (4)
  - Pneumonia [Not Recovered/Not Resolved]
  - Malignant neoplasm progression [Fatal]
  - Pulmonary embolism [Fatal]
  - Thrombosis [Unknown]

NARRATIVE: CASE EVENT DATE: 20180407
